FAERS Safety Report 11785924 (Version 1)
Quarter: 2015Q4

REPORT INFORMATION
  Report Type: Spontaneous
  Country: US (occurrence: None)
  Receive Date: 20151125
  Receipt Date: 20151125
  Transmission Date: 20160305
  Serious: No
  Sender: FDA-Public Use
  Company Number: None

PATIENT

DRUGS (4)
  1. WARFARIN [Concomitant]
     Active Substance: WARFARIN
  2. GENERLAC [Concomitant]
     Active Substance: LACTULOSE
  3. XALKORI [Suspect]
     Active Substance: CRIZOTINIB
     Indication: LUNG NEOPLASM MALIGNANT
     Route: 048
  4. MORPHINE [Concomitant]
     Active Substance: MORPHINE

REACTIONS (2)
  - Muscle spasms [None]
  - Myalgia [None]
